FAERS Safety Report 5580771-1 (Version None)
Quarter: 2008Q1

REPORT INFORMATION
  Report Type: 
  Country: None (occurrence: None)
  Receive Date: 20080103
  Receipt Date: 20071227
  Transmission Date: 20080703
  Serious: Yes (Hospitalization)
  Sender: FDA-Public Use
  Company Number: US-BRISTOL-MYERS SQUIBB COMPANY-14025803

PATIENT
  Age: 62 Year
  Sex: Male
  Weight: 69 kg

DRUGS (4)
  1. ERBITUX [Suspect]
     Indication: SQUAMOUS CELL CARCINOMA
  2. CISPLATIN [Suspect]
     Indication: SQUAMOUS CELL CARCINOMA
     Dates: start: 20070312, end: 20070312
  3. RADIATION THERAPY [Suspect]
     Indication: SQUAMOUS CELL CARCINOMA
     Dosage: 1 DOSAGE FORM = 70GY. 35 FRACTIONS.
     Dates: start: 20070309
  4. COLACE [Concomitant]

REACTIONS (2)
  - CONSTIPATION [None]
  - HAEMOGLOBIN DECREASED [None]
